FAERS Safety Report 13062938 (Version 2)
Quarter: 2017Q2

REPORT INFORMATION
  Report Type: Spontaneous
  Country: US (occurrence: US)
  Receive Date: 20161227
  Receipt Date: 20170601
  Transmission Date: 20170830
  Serious: No
  Sender: FDA-Public Use
  Company Number: US-ASTRAZENECA-2016SE97061

PATIENT
  Sex: Female

DRUGS (2)
  1. BYDUREON [Suspect]
     Active Substance: EXENATIDE
     Indication: GLYCOSYLATED HAEMOGLOBIN
     Route: 058
  2. BYDUREON [Suspect]
     Active Substance: EXENATIDE
     Indication: BLOOD GLUCOSE ABNORMAL
     Route: 058

REACTIONS (7)
  - Visual acuity reduced [Unknown]
  - Injection site haemorrhage [Unknown]
  - Eye disorder [Unknown]
  - Device malfunction [Unknown]
  - Product quality issue [Unknown]
  - Underdose [Unknown]
  - Intentional device misuse [Unknown]
